FAERS Safety Report 11930473 (Version 2)
Quarter: 2016Q1

REPORT INFORMATION
  Report Type: Report from Study
  Country: US (occurrence: US)
  Receive Date: 20160120
  Receipt Date: 20160128
  Transmission Date: 20160526
  Serious: Yes (Hospitalization, Disabling)
  Sender: FDA-Public Use
  Company Number: US-ACTELION-A-NJ2014-98797

PATIENT
  Age: 48 Year
  Sex: Female

DRUGS (2)
  1. TRACLEER [Suspect]
     Active Substance: BOSENTAN
     Indication: PULMONARY ARTERIAL HYPERTENSION
     Dosage: UNK
     Route: 048
     Dates: start: 200304, end: 20151216
  2. FLOLAN [Suspect]
     Active Substance: EPOPROSTENOL SODIUM
     Indication: PRODUCT USED FOR UNKNOWN INDICATION
     Dosage: 33 NG/KG, PER MIN
     Route: 042

REACTIONS (8)
  - Device related infection [Recovered/Resolved]
  - Right atrial dilatation [Recovering/Resolving]
  - Disease progression [Recovering/Resolving]
  - Pulmonary hypertension [Recovering/Resolving]
  - Transplant evaluation [Not Recovered/Not Resolved]
  - Lung transplant [Unknown]
  - Ascites [Recovering/Resolving]
  - Right ventricular failure [Recovering/Resolving]

NARRATIVE: CASE EVENT DATE: 201404
